FAERS Safety Report 24545950 (Version 2)
Quarter: 2024Q4

REPORT INFORMATION
  Report Type: Spontaneous
  Country: DE (occurrence: DE)
  Receive Date: 20241024
  Receipt Date: 20241202
  Transmission Date: 20250114
  Serious: Yes (Hospitalization)
  Sender: UCB
  Company Number: DE-ABBVIE-5969190

PATIENT
  Age: 61 Year
  Sex: Male
  Weight: 82 kg

DRUGS (7)
  1. ROTIGOTINE [Suspect]
     Active Substance: ROTIGOTINE
     Indication: Product used for unknown indication
  2. FOSCARBIDOPA\FOSLEVODOPA [Suspect]
     Active Substance: FOSCARBIDOPA\FOSLEVODOPA
     Indication: Product used for unknown indication
     Dosage: BASE RATE: 0,58 ML/H, NIGHTTIME RATE: 0,5 ML/H;EXTRABOLUS: 0,3 MLLAST ADMIN DATE: 2024
     Route: 058
     Dates: start: 202406
  3. CARBIDOPA\LEVODOPA [Suspect]
     Active Substance: CARBIDOPA\LEVODOPA
     Indication: Parkinson^s disease
     Dosage: 450 MILLIGRAM
     Dates: start: 2016, end: 2024
  4. CARBIDOPA\LEVODOPA [Suspect]
     Active Substance: CARBIDOPA\LEVODOPA
     Dosage: 100 MILLIGRAM
     Dates: start: 2024
  5. SKYRIZI [Suspect]
     Active Substance: RISANKIZUMAB-RZAA
     Indication: Crohn^s disease
     Route: 058
  6. BENSERAZIDE\LEVODOPA [Concomitant]
     Active Substance: BENSERAZIDE\LEVODOPA
     Indication: Product used for unknown indication
     Dosage: UP TO 300 MG
  7. PRAMIPEXOLE [Concomitant]
     Active Substance: PRAMIPEXOLE\PRAMIPEXOLE DIHYDROCHLORIDE
     Indication: Product used for unknown indication
     Dosage: 2.8 MILLIGRAM

REACTIONS (14)
  - Hospitalisation [Unknown]
  - On and off phenomenon [Unknown]
  - Drug intolerance [Unknown]
  - Nocturia [Unknown]
  - Sleep disorder [Unknown]
  - Injection site inflammation [Unknown]
  - Back pain [Unknown]
  - Dyskinesia [Unknown]
  - Headache [Unknown]
  - Nausea [Unknown]
  - Irritability [Unknown]
  - Unevaluable event [Unknown]
  - Mobility decreased [Unknown]
  - Device defective [Unknown]
